FAERS Safety Report 6712682-X (Version None)
Quarter: 2010Q2

REPORT INFORMATION
  Report Type: 
  Country: None (occurrence: None)
  Receive Date: 20100505
  Receipt Date: 20100505
  Transmission Date: 20101027
  Serious: Yes (Other)
  Sender: FDA-Public Use
  Company Number: None

PATIENT
  Age: 77 Year
  Sex: Female
  Weight: 52.6173 kg

DRUGS (1)
  1. RECLAST [Suspect]
     Indication: OSTEOPOROSIS
     Dosage: 5MG YEARLY IV DRIP
     Route: 041
     Dates: start: 20100415, end: 20100415

REACTIONS (3)
  - DYSPNOEA [None]
  - MUSCULOSKELETAL STIFFNESS [None]
  - PALPITATIONS [None]
